FAERS Safety Report 5573925-1 (Version None)
Quarter: 2007Q4

REPORT INFORMATION
  Report Type: 
  Country: None (occurrence: None)
  Receive Date: 20071226
  Receipt Date: 20071220
  Transmission Date: 20080405
  Serious: Yes (Other)
  Sender: FDA-Public Use
  Company Number: US-GILEAD-2007-0013117

PATIENT
  Sex: Female
  Weight: 57.204 kg

DRUGS (10)
  1. LETAIRIS [Suspect]
     Indication: PULMONARY HYPERTENSION
     Route: 048
     Dates: start: 20070808
  2. REVATIO [Suspect]
     Indication: PULMONARY HYPERTENSION
     Route: 048
     Dates: start: 20070110
  3. DIGOXIN [Concomitant]
     Indication: PULMONARY HYPERTENSION
     Route: 048
  4. ULTRAM [Concomitant]
     Indication: PAIN IN EXTREMITY
     Route: 048
  5. COUMADIN [Concomitant]
     Indication: ANTICOAGULANT THERAPY
     Route: 048
  6. LASIX [Concomitant]
     Indication: CARDIAC FAILURE CONGESTIVE
     Route: 048
  7. ZOFRAN [Concomitant]
     Indication: NAUSEA
     Route: 048
  8. IMODIUM [Concomitant]
     Indication: DIARRHOEA
     Route: 048
  9. TYLENOL [Concomitant]
     Indication: PAIN
     Route: 048
  10. VITAMIN CAP [Concomitant]
     Indication: SUPPLEMENTATION THERAPY
     Route: 048

REACTIONS (3)
  - DIARRHOEA [None]
  - HEADACHE [None]
  - NASAL CONGESTION [None]
